FAERS Safety Report 8898951 (Version 1)
Quarter: 2012Q4

REPORT INFORMATION
  Report Type: 
  Country: US (occurrence: US)
  Receive Date: 20121109
  Receipt Date: 20121109
  Transmission Date: 20130627
  Serious: Yes (Hospitalization)
  Sender: FDA-Public Use
  Company Number: US-BAYER-2012-115979

PATIENT
  Age: 27 Year
  Sex: Female
  Weight: 99.77 kg

DRUGS (9)
  1. OCELLA [Suspect]
     Indication: CONTRACEPTION
  2. TORADOL [Concomitant]
  3. MORPHINE [Concomitant]
  4. ZOFRAN [Concomitant]
  5. NICOTINE [Concomitant]
  6. NICOTINE [Concomitant]
  7. DILAUDID [Concomitant]
  8. CEPHALEXIN [Concomitant]
     Indication: BOIL
     Dosage: 500 mg, UNK
  9. VICODIN [Concomitant]

REACTIONS (1)
  - Pulmonary embolism [None]
